FAERS Safety Report 9546824 (Version 2)
Quarter: 2016Q3

REPORT INFORMATION
  Report Type: Spontaneous
  Country: TR (occurrence: TR)
  Receive Date: 20130924
  Receipt Date: 20160726
  Transmission Date: 20161109
  Serious: Yes (Life-Threatening, Hospitalization, Other)
  Sender: FDA-Public Use
  Company Number: TR-BRISTOL-MYERS SQUIBB COMPANY-19422336

PATIENT
  Age: 35 Year
  Sex: Female

DRUGS (2)
  1. ROSIGLITAZONE [Suspect]
     Active Substance: ROSIGLITAZONE
     Indication: PRODUCT USED FOR UNKNOWN INDICATION
     Dosage: 108 MG, UNK
     Route: 065
  2. METFORMIN HYDROCHLORIDE. [Suspect]
     Active Substance: METFORMIN HYDROCHLORIDE
     Indication: PRODUCT USED FOR UNKNOWN INDICATION
     Dosage: 48 G, UNK
     Route: 065

REACTIONS (4)
  - Intentional overdose [Unknown]
  - Suicide attempt [Unknown]
  - Loss of consciousness [Unknown]
  - Metabolic acidosis [Unknown]
